FAERS Safety Report 7917908-2 (Version None)
Quarter: 2011Q4

REPORT INFORMATION
  Report Type: 
  Country: None (occurrence: None)
  Receive Date: 20111116
  Receipt Date: 20111111
  Transmission Date: 20120403
  Serious: Yes (Life-Threatening)
  Sender: FDA-Public Use
  Company Number: PHEH2011US009168

PATIENT
  Sex: Female

DRUGS (2)
  1. ESTRADERM [Suspect]
     Dosage: 0.05 MG, QW2
     Route: 062
  2. ASCORBIC ACID [Concomitant]

REACTIONS (6)
  - FEELING ABNORMAL [None]
  - MYALGIA [None]
  - GAIT DISTURBANCE [None]
  - INSOMNIA [None]
  - BONE PAIN [None]
  - ARTHRALGIA [None]
